FAERS Safety Report 4972065-X (Version None)
Quarter: 2006Q2

REPORT INFORMATION
  Report Type: 
  Country: None (occurrence: None)
  Receive Date: 20060413
  Receipt Date: 20051223
  Transmission Date: 20061013
  Serious: Yes (Hospitalization, Other)
  Sender: FDA-Public Use
  Company Number: US-MERCK-0512USA03758

PATIENT
  Age: 66 Year
  Sex: Female
  Weight: 68 kg

DRUGS (8)
  1. VIOXX [Suspect]
     Indication: ARTHRITIS
     Route: 048
     Dates: start: 20000721, end: 20030101
  2. VIOXX [Suspect]
     Route: 065
     Dates: start: 20001201
  3. HYZAAR [Concomitant]
     Route: 065
  4. ASPIRIN [Concomitant]
     Route: 065
  5. HUMIBID [Concomitant]
     Route: 065
  6. ALLEGRA [Concomitant]
     Route: 065
  7. PREVACID [Concomitant]
     Route: 065
  8. NITROGLYCERIN [Concomitant]
     Route: 060

REACTIONS (15)
  - ANGINA UNSTABLE [None]
  - BACK PAIN [None]
  - CEREBROVASCULAR ACCIDENT [None]
  - CEREBROVASCULAR DISORDER [None]
  - CHEST PAIN [None]
  - CORONARY ARTERY DISEASE [None]
  - GASTRIC ULCER [None]
  - GASTRITIS HAEMORRHAGIC [None]
  - GASTROOESOPHAGEAL REFLUX DISEASE [None]
  - HYPERTENSION [None]
  - INJURY [None]
  - MYOCARDIAL INFARCTION [None]
  - NECK PAIN [None]
  - OESOPHAGITIS [None]
  - POST PROCEDURAL NAUSEA [None]
